FAERS Safety Report 26138921 (Version 1)
Quarter: 2025Q4

REPORT INFORMATION
  Report Type: Spontaneous
  Country: EU (occurrence: EU)
  Receive Date: 20251210
  Receipt Date: 20251210
  Transmission Date: 20260118
  Serious: Yes (Hospitalization)
  Sender: TEVA
  Company Number: None

PATIENT
  Age: 45 Year
  Sex: Male
  Weight: 86.5 kg

DRUGS (2)
  1. CISPLATIN [Suspect]
     Active Substance: CISPLATIN
     Indication: Thyroid cancer
     Dosage: TIME INTERVAL: CYCLICAL
     Route: 042
     Dates: start: 20251010, end: 20251010
  2. DOXORUBICIN [Concomitant]
     Active Substance: DOXORUBICIN
     Indication: Thyroid cancer
     Dosage: TIME INTERVAL: CYCLICAL
     Route: 042
     Dates: start: 20251010, end: 20251010

REACTIONS (3)
  - Acute kidney injury [Recovering/Resolving]
  - Paraesthesia [Recovering/Resolving]
  - Generalised tonic-clonic seizure [Recovering/Resolving]

NARRATIVE: CASE EVENT DATE: 20251020
